FAERS Safety Report 8882295 (Version 1)
Quarter: 2012Q4

REPORT INFORMATION
  Report Type: Report from Study
  Country: BR (occurrence: BR)
  Receive Date: 20121102
  Receipt Date: 20121102
  Transmission Date: 20130627
  Serious: Yes (Other)
  Sender: FDA-Public Use
  Company Number: BR-ABBOTT-12P-020-1000055-00

PATIENT
  Sex: Female
  Weight: 81 kg

DRUGS (10)
  1. HUMIRA [Suspect]
     Indication: RHEUMATOID ARTHRITIS
     Dosage: no induction dose
     Route: 058
     Dates: start: 20090227
  2. METHOTREXATE [Concomitant]
     Indication: RHEUMATOID ARTHRITIS
     Route: 048
  3. ENALAPRIL [Concomitant]
     Indication: BLOOD PRESSURE
     Route: 048
     Dates: start: 1988
  4. FOLIC ACID [Concomitant]
     Indication: RHEUMATOID ARTHRITIS
     Route: 048
     Dates: start: 2009
  5. OMEPRAZOLE [Concomitant]
     Indication: GASTRIC DISORDER
     Route: 048
  6. FLUOXETINE [Concomitant]
     Indication: STRESS
     Route: 048
     Dates: start: 2009
  7. ISORDIL [Concomitant]
     Indication: CHEST PAIN
     Route: 048
  8. CHLOROQUINE [Concomitant]
     Indication: ARTHRITIS
     Route: 048
     Dates: start: 1988
  9. SPIRONOLACTONE (ALDOSTERIN) [Concomitant]
     Indication: CARDIAC DISORDER
     Route: 048
     Dates: start: 2008
  10. TEOLONG [Concomitant]
     Indication: LUNG DISORDER
     Route: 048

REACTIONS (10)
  - Cardiac disorder [Unknown]
  - Joint dislocation [Unknown]
  - Carpal tunnel syndrome [Unknown]
  - Carpal tunnel syndrome [Unknown]
  - Knee arthroplasty [Unknown]
  - Knee arthroplasty [Unknown]
  - Pain [Unknown]
  - Pneumonia [Unknown]
  - Glaucoma [Unknown]
  - Cataract [Unknown]
